FAERS Safety Report 6391588-2 (Version None)
Quarter: 2009Q4

REPORT INFORMATION
  Report Type: 
  Country: None (occurrence: None)
  Receive Date: 20091007
  Receipt Date: 20090925
  Transmission Date: 20100525
  Serious: Yes (Hospitalization)
  Sender: FDA-Public Use
  Company Number: BR-WYE-H11236209

PATIENT
  Sex: Female
  Weight: 91 kg

DRUGS (4)
  1. PRISTIQ [Suspect]
     Indication: DEPRESSION
     Route: 048
     Dates: start: 20090728, end: 20090730
  2. PRISTIQ [Suspect]
     Indication: PANIC DISORDER
     Route: 048
     Dates: start: 20090803, end: 20090917
  3. TAMARINE [Concomitant]
     Indication: CONSTIPATION
     Dosage: UNKNOWN DOSE TWICE DAILY
  4. LIPITOR [Concomitant]
     Indication: BLOOD CHOLESTEROL INCREASED
     Dates: start: 20060101

REACTIONS (8)
  - CONFUSIONAL STATE [None]
  - FALL [None]
  - IRRITABILITY [None]
  - MALAISE [None]
  - MEMORY IMPAIRMENT [None]
  - NAUSEA [None]
  - PATELLA FRACTURE [None]
  - UNEVALUABLE EVENT [None]
